FAERS Safety Report 8434254-1 (Version None)
Quarter: 2012Q2

REPORT INFORMATION
  Report Type: 
  Country: None (occurrence: None)
  Receive Date: 20120613
  Receipt Date: 20120601
  Transmission Date: 20120825
  Serious: No
  Sender: FDA-Public Use
  Company Number: US-ASTRAZENECA-2012SE37117

PATIENT
  Sex: Female

DRUGS (14)
  1. AMLODIPINE [Concomitant]
  2. PANTOPRAZOLE [Concomitant]
  3. FLUTICASONE FUROATE [Concomitant]
  4. SYMBICORT [Suspect]
     Route: 055
  5. TRAMADOL HCL [Concomitant]
  6. CEPHALEXIN [Concomitant]
  7. TOPROL-XL [Suspect]
     Route: 048
  8. DICYCLOMINE [Concomitant]
  9. KETOROLAC TROMETHAMINE [Concomitant]
  10. PROAIR HFA [Concomitant]
  11. PRILOSEC [Suspect]
     Route: 048
  12. IPRATROPIUM SPR [Concomitant]
  13. MORPHINE SUL [Concomitant]
  14. ASTELIN [Concomitant]

REACTIONS (5)
  - PAIN [None]
  - BRONCHITIS [None]
  - FEELING ABNORMAL [None]
  - THINKING ABNORMAL [None]
  - INTENTIONAL DRUG MISUSE [None]
